FAERS Safety Report 8453464-0 (Version None)
Quarter: 2012Q2

REPORT INFORMATION
  Report Type: 
  Country: None (occurrence: None)
  Receive Date: 20120620
  Receipt Date: 20120518
  Transmission Date: 20120825
  Serious: No
  Sender: FDA-Public Use
  Company Number: US-VERTEX PHARMACEUTICALS INC.-AE-2012-007402

PATIENT
  Sex: Male
  Weight: 91.254 kg

DRUGS (6)
  1. HYDROXYZINE HCL [Concomitant]
  2. INCIVEK [Suspect]
     Indication: HEPATITIS C
     Route: 048
     Dates: start: 20120508
  3. RIBAVIRIN [Concomitant]
     Indication: HEPATITIS C
     Dates: start: 20120508
  4. PREVACID [Concomitant]
  5. PEGASYS [Concomitant]
     Indication: HEPATITIS C
     Route: 058
     Dates: start: 20120508
  6. HYDROCHLOROTHIAZIDE [Concomitant]

REACTIONS (2)
  - RASH GENERALISED [None]
  - PRURITUS [None]
